FAERS Safety Report 18990918 (Version 3)
Quarter: 2021Q1

REPORT INFORMATION
  Report Type: Report from Study
  Country: MX (occurrence: MX)
  Receive Date: 20210310
  Receipt Date: 20210324
  Transmission Date: 20210420
  Serious: Yes (Other)
  Sender: FDA-Public Use
  Company Number: NVSC2021MX027520

PATIENT
  Age: 15 Year
  Sex: Female
  Weight: 54 kg

DRUGS (1)
  1. GALVUS MET [Suspect]
     Active Substance: METFORMIN HYDROCHLORIDE\VILDAGLIPTIN
     Indication: ACANTHOSIS
     Dosage: 0.5 DF, BID (1000/50 MG) (AT THE MID?DAY AND AT NIGHT)
     Route: 048
     Dates: start: 202007

REACTIONS (17)
  - Neck pain [Recovered/Resolved]
  - Rhinorrhoea [Recovered/Resolved]
  - Pain [Unknown]
  - Viral infection [Unknown]
  - Nasal congestion [Recovered/Resolved]
  - Sneezing [Recovered/Resolved]
  - Oropharyngeal pain [Recovered/Resolved]
  - Headache [Unknown]
  - Blood cholesterol increased [Unknown]
  - Product prescribing error [Unknown]
  - Liver injury [Unknown]
  - Nasopharyngitis [Recovered/Resolved]
  - Pyrexia [Recovered/Resolved]
  - Blood triglycerides increased [Unknown]
  - Product use in unapproved indication [Unknown]
  - Lymphadenopathy [Recovering/Resolving]
  - Lymph node pain [Not Recovered/Not Resolved]

NARRATIVE: CASE EVENT DATE: 20210120
